FAERS Safety Report 9413556 (Version 4)
Quarter: 2014Q1

REPORT INFORMATION
  Report Type: Spontaneous
  Country: US (occurrence: None)
  Receive Date: 20130528
  Receipt Date: 20140114
  Transmission Date: 20141002
  Serious: Yes (Other)
  Sender: FDA-Public Use
  Company Number: 32011

PATIENT
  Age: 57 Year
  Sex: Female
  Weight: 58.51 kg

DRUGS (4)
  1. GLASSIA [Suspect]
     Indication: ALPHA-1 ANTI-TRYPSIN DEFICIENCY
     Route: 042
     Dates: start: 201205
  2. WELCHOL [Concomitant]
  3. XANAX [Concomitant]
  4. XOPENEX [Concomitant]

REACTIONS (21)
  - Headache [None]
  - Dyspnoea [None]
  - Fatigue [None]
  - Cough [None]
  - Drug dose omission [None]
  - Malaise [None]
  - Vision blurred [None]
  - Somnolence [None]
  - Feeling abnormal [None]
  - Muscle tightness [None]
  - Infection [None]
  - Dermatitis allergic [None]
  - Sinusitis [None]
  - Hypersensitivity [None]
  - Paralysis [None]
  - Aphasia [None]
  - Hypotension [None]
  - Bradycardia [None]
  - Pupillary reflex impaired [None]
  - Heart rate increased [None]
  - Holmes-Adie pupil [None]
